FAERS Safety Report 15028795 (Version 1)
Quarter: 2018Q2

REPORT INFORMATION
  Report Type: Spontaneous
  Country: US (occurrence: US)
  Receive Date: 20180528
  Receipt Date: 20180528
  Transmission Date: 20180711
  Serious: No
  Sender: FDA-Public Use
  Company Number: None

PATIENT
  Age: 59 Year
  Sex: Male

DRUGS (1)
  1. HARVONI [Suspect]
     Active Substance: LEDIPASVIR\SOFOSBUVIR
     Dates: start: 20180525, end: 20180528

REACTIONS (3)
  - Arthralgia [None]
  - Condition aggravated [None]
  - Inflammation [None]

NARRATIVE: CASE EVENT DATE: 20180528
